FAERS Safety Report 17652937 (Version 1)
Quarter: 2020Q2

REPORT INFORMATION
  Report Type: Spontaneous
  Country: US (occurrence: US)
  Receive Date: 20200409
  Receipt Date: 20200409
  Transmission Date: 20200713
  Serious: No
  Sender: FDA-Public Use
  Company Number: US-TEVA-2020-US-1219619

PATIENT
  Sex: Female

DRUGS (1)
  1. NIFEDIPINE. [Suspect]
     Active Substance: NIFEDIPINE
     Indication: HYPERTENSION
     Dosage: 30 MILLIGRAM DAILY; ER XL/SOM
     Route: 065

REACTIONS (4)
  - Diarrhoea [Unknown]
  - Hypoaesthesia [Unknown]
  - Swelling face [Unknown]
  - Tremor [Unknown]
